FAERS Safety Report 4964102-3 (Version None)
Quarter: 2006Q1

REPORT INFORMATION
  Report Type: 
  Country: None (occurrence: None)
  Receive Date: 20060201
  Receipt Date: 20051116
  Transmission Date: 20060701
  Serious: No
  Sender: FDA-Public Use
  Company Number: 2005PV004839

PATIENT
  Age: 59 Year
  Sex: Female
  Weight: 97.5234 kg

DRUGS (4)
  1. BYETTA [Suspect]
     Indication: DIABETES MELLITUS NON-INSULIN-DEPENDENT
     Dosage: 5 MCG; BID; SC
     Route: 058
     Dates: start: 20051018
  2. HUMULIN N [Concomitant]
  3. GLYBURIDE [Concomitant]
  4. GLUCOPHAGE [Concomitant]

REACTIONS (3)
  - BLOOD GLUCOSE DECREASED [None]
  - HOT FLUSH [None]
  - HYPERHIDROSIS [None]
